FAERS Safety Report 4863358-5 (Version None)
Quarter: 2005Q4

REPORT INFORMATION
  Report Type: 
  Country: None (occurrence: None)
  Receive Date: 20051219
  Receipt Date: 20051219
  Transmission Date: 20060501
  Serious: Yes (Hospitalization)
  Sender: FDA-Public Use
  Company Number: None

PATIENT
  Sex: Male

DRUGS (1)
  1. AUGMENTIN '125' [Suspect]
     Indication: EAR INFECTION
     Dosage: 3/4 TSP PO BID X 10 DAYS
     Route: 048
     Dates: start: 20051126, end: 20051201

REACTIONS (4)
  - DRUG HYPERSENSITIVITY [None]
  - RASH [None]
  - SWELLING [None]
  - THROAT IRRITATION [None]
